FAERS Safety Report 16842675 (Version 1)
Quarter: 2019Q3

REPORT INFORMATION
  Report Type: Spontaneous
  Country: US (occurrence: US)
  Receive Date: 20190924
  Receipt Date: 20190924
  Transmission Date: 20191005
  Serious: No
  Sender: FDA-Public Use
  Company Number: US-009507513-1909USA008923

PATIENT
  Age: 41 Year
  Sex: Female

DRUGS (5)
  1. MENOPUR [Concomitant]
     Active Substance: FOLLITROPIN\LUTEINIZING HORMONE
  2. GANIRELIX ACETATE. [Concomitant]
     Active Substance: GANIRELIX ACETATE
  3. FOLLISTIM [Concomitant]
     Active Substance: FOLLITROPIN
  4. PREGNYL [Suspect]
     Active Substance: CHORIOGONADOTROPIN ALFA
     Dosage: UNK
  5. PREGNYL [Suspect]
     Active Substance: CHORIOGONADOTROPIN ALFA
     Indication: IN VITRO FERTILISATION
     Dosage: PREGNYL INJECTION 10 (UNITS UNKNWON)
     Route: 030
     Dates: start: 20190910

REACTIONS (1)
  - Human chorionic gonadotropin negative [Not Recovered/Not Resolved]

NARRATIVE: CASE EVENT DATE: 20190912
